FAERS Safety Report 7280612-0 (Version None)
Quarter: 2011Q1

REPORT INFORMATION
  Report Type: 
  Country: None (occurrence: None)
  Receive Date: 20110126
  Receipt Date: 20110117
  Transmission Date: 20110831
  Serious: Yes (Death)
  Sender: FDA-Public Use
  Company Number: DKLU1067693

PATIENT
  Age: 7 Year
  Sex: Female

DRUGS (1)
  1. SABRIL [Suspect]
     Indication: EPILEPSY
     Dosage: 2 IN 1 D, ORAL
     Route: 048
     Dates: start: 20100301

REACTIONS (1)
  - DEATH [None]
